FAERS Safety Report 9321624 (Version 4)
Quarter: 2014Q1

REPORT INFORMATION
  Report Type: Spontaneous
  Country: US (occurrence: US)
  Receive Date: 20130531
  Receipt Date: 20140318
  Transmission Date: 20141002
  Serious: Yes (Hospitalization, Disabling)
  Sender: FDA-Public Use
  Company Number: US-BAYER-2013-064562

PATIENT
  Age: 32 Year
  Sex: Female
  Weight: 79.37 kg

DRUGS (1)
  1. MIRENA [Suspect]
     Indication: CONTRACEPTION
     Dosage: 20 MCG/24HR, CONT
     Route: 015
     Dates: start: 200906, end: 201105

REACTIONS (6)
  - Embedded device [None]
  - Infertility female [None]
  - Injury [None]
  - Pain [None]
  - Emotional distress [None]
  - Device dislocation [None]
